FAERS Safety Report 23661235 (Version 1)
Quarter: 2024Q1

REPORT INFORMATION
  Report Type: Report from Study
  Country: CA (occurrence: CA)
  Receive Date: 20240322
  Receipt Date: 20240322
  Transmission Date: 20240409
  Serious: Yes (Other)
  Sender: FDA-Public Use
  Company Number: CA-CELLTRION INC.-2024CA006402

PATIENT

DRUGS (1)
  1. YUFLYMA [Suspect]
     Active Substance: ADALIMUMAB-AATY
     Indication: Hidradenitis
     Dosage: 40 MG WEEKLY
     Route: 058
     Dates: start: 20240302

REACTIONS (5)
  - Ligament sprain [Unknown]
  - Ligament sprain [Unknown]
  - Injection site mass [Unknown]
  - Contusion [Unknown]
  - Pain [Unknown]

NARRATIVE: CASE EVENT DATE: 20240302
